FAERS Safety Report 19180317 (Version 1)
Quarter: 2021Q2

REPORT INFORMATION
  Report Type: Spontaneous
  Country: US (occurrence: US)
  Receive Date: 20210426
  Receipt Date: 20210426
  Transmission Date: 20210717
  Serious: Yes (Other)
  Sender: FDA-Public Use
  Company Number: None

PATIENT
  Age: 73 Year
  Sex: Male
  Weight: 93.6 kg

DRUGS (21)
  1. TESTOSTERONE (ATREVIS) 50 MG/GM GEL RX C70006669; APPLY TO FOREARM [Suspect]
     Active Substance: TESTOSTERONE
     Indication: IRRITABILITY
     Dosage: ?          QUANTITY:2 0.5ML;?
     Route: 061
  2. LOSARTEN [Concomitant]
     Active Substance: LOSARTAN
  3. METOPROLOL TARTRATE. [Concomitant]
     Active Substance: METOPROLOL TARTRATE
  4. HEART STENTS [Concomitant]
  5. CALCIUM W/MG + VIT C [Concomitant]
  6. AMLODOPINE [Concomitant]
     Active Substance: AMLODIPINE BESYLATE
  7. ANASTRAZOLE [Concomitant]
     Active Substance: ANASTROZOLE
  8. INDOMETHACIN. [Concomitant]
     Active Substance: INDOMETHACIN
  9. COLCRYS [Concomitant]
     Active Substance: COLCHICINE
  10. TESTOSTERONE (ATREVIS) 50 MG/GM GEL RX C70006669; APPLY TO FOREARM [Suspect]
     Active Substance: TESTOSTERONE
     Indication: FATIGUE
     Dosage: ?          QUANTITY:2 0.5ML;?
     Route: 061
  11. TAMULOSIN [Concomitant]
     Active Substance: TAMSULOSIN
  12. BABY ASA [Concomitant]
     Active Substance: ASPIRIN
  13. GLUCOSAMINE/CHONDROITIN WITH MSM [Concomitant]
  14. HEARING AIDS BILATERAL [Concomitant]
  15. ATORVASTATIN [Concomitant]
     Active Substance: ATORVASTATIN
  16. NITROSTAT [Concomitant]
     Active Substance: NITROGLYCERIN
  17. ALPRAZOLAM. [Concomitant]
     Active Substance: ALPRAZOLAM
  18. UBIQUINONE [Concomitant]
     Active Substance: DIETARY SUPPLEMENT\UBIDECARENONE
  19. TESTOSTERONE (ATREVIS) 50 MG/GM GEL RX C70006669; APPLY TO FOREARM [Suspect]
     Active Substance: TESTOSTERONE
     Indication: BLOOD TESTOSTERONE DECREASED
     Dosage: ?          QUANTITY:2 0.5ML;?
     Route: 061
  20. CLOPIDOGREL [Concomitant]
     Active Substance: CLOPIDOGREL BISULFATE
  21. I?CAP [Concomitant]

REACTIONS (7)
  - Application site rash [None]
  - Therapy interrupted [None]
  - Fatigue [None]
  - Application site pruritus [None]
  - Discomfort [None]
  - Depression [None]
  - Affective disorder [None]

NARRATIVE: CASE EVENT DATE: 20201206
